FAERS Safety Report 24710349 (Version 1)
Quarter: 2024Q4

REPORT INFORMATION
  Report Type: Spontaneous
  Country: US (occurrence: US)
  Receive Date: 20241209
  Receipt Date: 20241209
  Transmission Date: 20250114
  Serious: No
  Sender: BOEHRINGER INGELHEIM
  Company Number: US-Komodo Health-a23aa000004YuIPAA0

PATIENT
  Sex: Male
  Weight: 83 kg

DRUGS (3)
  1. JARDIANCE [Suspect]
     Active Substance: EMPAGLIFLOZIN
     Indication: Product used for unknown indication
     Dosage: DAILY DOSE: 10 MILLIGRAM(S)
  2. VYNDAMAX [Suspect]
     Active Substance: TAFAMIDIS
     Indication: Product used for unknown indication
  3. TAFAMIDIS [Suspect]
     Active Substance: TAFAMIDIS
     Indication: Product used for unknown indication

REACTIONS (10)
  - Hypoaesthesia [Unknown]
  - Fatigue [Unknown]
  - Electric shock sensation [Unknown]
  - Sensitive skin [Unknown]
  - Lice infestation [Unknown]
  - Pain [Unknown]
  - Dizziness exertional [Unknown]
  - Weight increased [Unknown]
  - Blood pressure increased [Unknown]
  - Arthritis [Unknown]
